FAERS Safety Report 4680153-0 (Version None)
Quarter: 2005Q2

REPORT INFORMATION
  Report Type: 
  Country: None (occurrence: None)
  Receive Date: 20050602
  Receipt Date: 20040614
  Transmission Date: 20051028
  Serious: Yes (Hospitalization, Disabling, Other)
  Sender: FDA-Public Use
  Company Number: PHBS2004BE07996

PATIENT
  Age: 83 Year
  Sex: Female

DRUGS (4)
  1. AROMASIN [Concomitant]
     Route: 065
     Dates: start: 20020701, end: 20030818
  2. FASLODEX [Concomitant]
     Route: 065
     Dates: start: 20040611
  3. TAMOXIFEN [Concomitant]
     Dosage: UNK, UNK
     Route: 048
     Dates: start: 20030818, end: 20040611
  4. ZOMETA [Suspect]
     Dosage: 4 MG
     Route: 042
     Dates: start: 20020715, end: 20040607

REACTIONS (7)
  - ASEPTIC NECROSIS BONE [None]
  - FISTULA [None]
  - INFECTION [None]
  - MALIGNANT NEOPLASM PROGRESSION [None]
  - OSTEONECROSIS [None]
  - SUPERINFECTION [None]
  - TOOTH EXTRACTION [None]
